FAERS Safety Report 8850235 (Version 2)
Quarter: 2014Q2

REPORT INFORMATION
  Report Type: Spontaneous
  Country: CA (occurrence: CA)
  Receive Date: 20121019
  Receipt Date: 20140410
  Transmission Date: 20141212
  Serious: Yes (Life-Threatening, Hospitalization, Other)
  Sender: FDA-Public Use
  Company Number: CA-ELI_LILLY_AND_COMPANY-CA201210001931

PATIENT
  Age: 22 Year
  Sex: Male

DRUGS (7)
  1. PROZAC [Suspect]
     Indication: PRODUCT USED FOR UNKNOWN INDICATION
     Dosage: 30 MG, UNKNOWN
     Route: 065
  2. CLOZARIL [Interacting]
     Indication: CATATONIA
     Dosage: 300 MG, QD
     Route: 048
     Dates: start: 20030616
  3. CLOZARIL [Interacting]
     Indication: SCHIZOPHRENIA
     Dosage: 500 MG, QD
     Route: 048
  4. CLOZARIL [Interacting]
     Dosage: 250 MG, QD
     Route: 048
     Dates: start: 20120306
  5. CLOZARIL [Interacting]
     Dosage: UNK
  6. MULTIVITAMINS [Concomitant]
     Indication: PRODUCT USED FOR UNKNOWN INDICATION
     Dosage: UNK
  7. THEOPHYLLINE [Concomitant]
     Indication: PRODUCT USED FOR UNKNOWN INDICATION
     Dosage: 1 DF, UNKNOWN
     Route: 065

REACTIONS (11)
  - Respiratory distress [Recovered/Resolved]
  - Unresponsive to stimuli [Unknown]
  - Depressed level of consciousness [Unknown]
  - Myoclonus [Recovered/Resolved]
  - Lobar pneumonia [Recovered/Resolved]
  - Hypotension [Unknown]
  - Sedation [Unknown]
  - Cough [Unknown]
  - Retching [Unknown]
  - Drug interaction [Recovered/Resolved]
  - Antipsychotic drug level increased [Unknown]
